FAERS Safety Report 8366868-1 (Version None)
Quarter: 2012Q2

REPORT INFORMATION
  Report Type: 
  Country: None (occurrence: None)
  Receive Date: 20120515
  Receipt Date: 20120515
  Transmission Date: 20120825
  Serious: Yes (Life-Threatening, Disabling, Other)
  Sender: FDA-Public Use
  Company Number: None

PATIENT
  Sex: Female
  Weight: 78.2 kg

DRUGS (3)
  1. BOTOX [Suspect]
     Dates: start: 19960101
  2. EFFEXOR [Concomitant]
  3. KLONOPIN [Concomitant]

REACTIONS (6)
  - MOVEMENT DISORDER [None]
  - TORTICOLLIS [None]
  - BLEPHAROSPASM [None]
  - CHEST PAIN [None]
  - DYSTONIA [None]
  - MUSCLE TWITCHING [None]
